FAERS Safety Report 15969440 (Version 4)
Quarter: 2019Q2

REPORT INFORMATION
  Report Type: Report from Study
  Country: US (occurrence: US)
  Receive Date: 20190215
  Receipt Date: 20190624
  Transmission Date: 20190711
  Serious: Yes (Hospitalization)
  Sender: FDA-Public Use
  Company Number: US-ACTELION-A-NJ2019-186292

PATIENT
  Sex: Female
  Weight: 49.89 kg

DRUGS (5)
  1. UPTRAVI [Suspect]
     Active Substance: SELEXIPAG
     Indication: PULMONARY HYPERTENSION
     Dosage: 1400 MCG, BID
     Route: 048
  2. ADCIRCA [Concomitant]
     Active Substance: TADALAFIL
     Dosage: UNK
  3. UPTRAVI [Suspect]
     Active Substance: SELEXIPAG
     Dosage: 1600MCG, BID
     Route: 048
  4. UPTRAVI [Suspect]
     Active Substance: SELEXIPAG
     Dosage: UNK
     Route: 048
  5. OPSUMIT [Suspect]
     Active Substance: MACITENTAN
     Indication: PULMONARY HYPERTENSION
     Dosage: 10 MG, QD
     Route: 048

REACTIONS (15)
  - Pain in extremity [Unknown]
  - Circulatory collapse [Unknown]
  - Chest pain [Unknown]
  - Dizziness [Unknown]
  - Visual impairment [Unknown]
  - Presyncope [Unknown]
  - Therapy non-responder [Unknown]
  - Syncope [Unknown]
  - Paraesthesia [Unknown]
  - Pain [Unknown]
  - Anaemia [Unknown]
  - Transfusion [Unknown]
  - Headache [Unknown]
  - Menorrhagia [Unknown]
  - Vision blurred [Unknown]
